FAERS Safety Report 8589920 (Version 3)
Quarter: 2012Q4

REPORT INFORMATION
  Report Type: Spontaneous
  Country: US (occurrence: None)
  Receive Date: 20120515
  Receipt Date: 20121113
  Transmission Date: 20130627
  Serious: Yes (Death, Hospitalization, Other)
  Sender: FDA-Public Use
  Company Number: ACO_30290_2012

PATIENT
  Age: 69 Year
  Sex: Male
  Weight: 108.8 kg

DRUGS (4)
  1. AMPYRA [Suspect]
     Indication: GAIT DISTURBANCE
     Dosage: 10 MG, BID, ORAL
     Route: 048
     Dates: start: 201107, end: 20120502
  2. TYSABRI [Suspect]
     Indication: DRUG USE FOR UNKNOWN INDICATION
     Dates: end: 2012
  3. ANTIHYPERTENSIVES [Concomitant]
  4. EFFEXOR [Concomitant]

REACTIONS (5)
  - Convulsion [None]
  - Progressive multifocal leukoencephalopathy [None]
  - Herpes zoster [None]
  - Multiple sclerosis relapse [None]
  - Drug ineffective [None]
